FAERS Safety Report 6531464-5 (Version None)
Quarter: 2009Q4

REPORT INFORMATION
  Report Type: 
  Country: None (occurrence: None)
  Receive Date: 20091222
  Receipt Date: 20091026
  Transmission Date: 20100525
  Serious: No
  Sender: FDA-Public Use
  Company Number: ALL1-2009-03370

PATIENT
  Age: 16 Year
  Sex: Male
  Weight: 46.7 kg

DRUGS (1)
  1. VYVANSE [Suspect]
     Indication: ATTENTION DEFICIT/HYPERACTIVITY DISORDER
     Dosage: 20 MG, OTHER (DAILY, MONDAY TO FRIDAY, SCHOOL DAYS), ORAL
     Route: 048
     Dates: start: 20081001

REACTIONS (4)
  - ANXIETY [None]
  - ILLUSION [None]
  - OFF LABEL USE [None]
  - TACHYPHRENIA [None]
